FAERS Safety Report 23583942 (Version 5)
Quarter: 2024Q3

REPORT INFORMATION
  Report Type: Spontaneous
  Country: US (occurrence: US)
  Receive Date: 20240301
  Receipt Date: 20240702
  Transmission Date: 20241017
  Serious: Yes (Other)
  Sender: BLUEPRINT MEDICINES
  Company Number: US-Blueprint Medicines Corporation-2532

PATIENT
  Sex: Male

DRUGS (2)
  1. AYVAKIT [Suspect]
     Active Substance: AVAPRITINIB
     Indication: Systemic mastocytosis
     Route: 048
     Dates: start: 20230706
  2. AYVAKIT [Suspect]
     Active Substance: AVAPRITINIB
     Indication: Indolent systemic mastocytosis
     Route: 048
     Dates: start: 20230703

REACTIONS (14)
  - Loss of consciousness [Unknown]
  - Nonspecific reaction [Unknown]
  - Muscular weakness [Unknown]
  - Bradykinesia [Unknown]
  - Gait disturbance [Unknown]
  - Speech disorder [Unknown]
  - Fatigue [Unknown]
  - General symptom [Recovering/Resolving]
  - Asthenia [Unknown]
  - Abdominal discomfort [Unknown]
  - Feeling abnormal [Unknown]
  - Ear disorder [Unknown]
  - Mast cell activation syndrome [Unknown]
  - Drug ineffective [Unknown]
